FAERS Safety Report 17069760 (Version 2)
Quarter: 2019Q4

REPORT INFORMATION
  Report Type: Spontaneous
  Country: US (occurrence: US)
  Receive Date: 20191125
  Receipt Date: 20191203
  Transmission Date: 20200122
  Serious: Yes (Hospitalization, Other)
  Sender: FDA-Public Use
  Company Number: US-ALKEM LABORATORIES LIMITED-US-ALKEM-2019-10018

PATIENT
  Age: 20 Year
  Sex: Male

DRUGS (1)
  1. METHADONE HYDROCHLORIDE. [Suspect]
     Active Substance: METHADONE HYDROCHLORIDE
     Indication: PRODUCT USED FOR UNKNOWN INDICATION
     Dosage: UNK
     Route: 065

REACTIONS (11)
  - Miosis [Recovered/Resolved]
  - Tachypnoea [Recovered/Resolved]
  - Deafness bilateral [Recovered/Resolved]
  - Respiratory distress [Recovered/Resolved]
  - Accidental overdose [Unknown]
  - Rhabdomyolysis [Recovered/Resolved]
  - Cyanosis [Recovered/Resolved]
  - Respiratory acidosis [Recovered/Resolved]
  - Sinus tachycardia [Recovered/Resolved]
  - Pneumonia aspiration [Recovered/Resolved]
  - Tachycardia [Recovered/Resolved]
